FAERS Safety Report 12544727 (Version 1)
Quarter: 2016Q3

REPORT INFORMATION
  Report Type: Spontaneous
  Country: US (occurrence: US)
  Receive Date: 20160711
  Receipt Date: 20160711
  Transmission Date: 20161109
  Serious: No
  Sender: FDA-Public Use
  Company Number: US-PFIZER INC-2016301848

PATIENT
  Sex: Female

DRUGS (4)
  1. VIBRAMYCIN [Suspect]
     Active Substance: DOXYCYCLINE
  2. FELDENE [Suspect]
     Active Substance: PIROXICAM
  3. PROPOXYPHENE. [Suspect]
     Active Substance: PROPOXYPHENE
  4. DARVON [Suspect]
     Active Substance: PROPOXYPHENE HYDROCHLORIDE

REACTIONS (1)
  - Drug hypersensitivity [Unknown]
